FAERS Safety Report 7210819-X (Version None)
Quarter: 2011Q1

REPORT INFORMATION
  Report Type: 
  Country: None (occurrence: None)
  Receive Date: 20110105
  Receipt Date: 20101130
  Transmission Date: 20110831
  Serious: Yes (Other)
  Sender: FDA-Public Use
  Company Number: PHHY2007US03740

PATIENT
  Sex: Female

DRUGS (1)
  1. LOTREL [Suspect]

REACTIONS (1)
  - SWELLING [None]
